FAERS Safety Report 7410404-0 (Version None)
Quarter: 2011Q2

REPORT INFORMATION
  Report Type: 
  Country: None (occurrence: None)
  Receive Date: 20110412
  Receipt Date: 20110330
  Transmission Date: 20111010
  Serious: Yes (Other)
  Sender: FDA-Public Use
  Company Number: US-MERCK-0905USA02960

PATIENT
  Age: 14 Year
  Sex: Female
  Weight: 55 kg

DRUGS (5)
  1. XYZAL [Concomitant]
     Route: 065
  2. ALBUTEROL [Concomitant]
     Route: 065
  3. SINGULAIR [Suspect]
     Route: 048
     Dates: start: 20090419, end: 20090424
  4. CALCIUM (UNSPECIFIED) [Concomitant]
     Route: 065
  5. VITAMINS (UNSPECIFIED) [Concomitant]
     Route: 065

REACTIONS (2)
  - OVERDOSE [None]
  - SUICIDAL IDEATION [None]
